FAERS Safety Report 16697860 (Version 1)
Quarter: 2019Q3

REPORT INFORMATION
  Report Type: Spontaneous
  Country: AR (occurrence: AR)
  Receive Date: 20190813
  Receipt Date: 20190813
  Transmission Date: 20191004
  Serious: Yes (Other)
  Sender: FDA-Public Use
  Company Number: PHHY2019AR186248

PATIENT
  Age: 15 Year
  Sex: Female

DRUGS (3)
  1. KARIDIUM [Concomitant]
     Indication: PRODUCT USED FOR UNKNOWN INDICATION
     Dosage: UNK
     Route: 065
  2. LOGICAL [Concomitant]
     Indication: PRODUCT USED FOR UNKNOWN INDICATION
     Dosage: UNK
     Route: 065
  3. TEGRETOL [Suspect]
     Active Substance: CARBAMAZEPINE
     Indication: PRODUCT USED FOR UNKNOWN INDICATION
     Dosage: UNK
     Route: 065

REACTIONS (5)
  - Cerebral calcification [Unknown]
  - Seizure [Unknown]
  - Cerebral disorder [Unknown]
  - Electroencephalogram abnormal [Unknown]
  - Hyperintensity in brain deep nuclei [Unknown]

NARRATIVE: CASE EVENT DATE: 1997
